FAERS Safety Report 8213483-6 (Version None)
Quarter: 2012Q1

REPORT INFORMATION
  Report Type: 
  Country: None (occurrence: None)
  Receive Date: 20120315
  Receipt Date: 20120308
  Transmission Date: 20120608
  Serious: Yes (Life-Threatening, Hospitalization)
  Sender: FDA-Public Use
  Company Number: JP-MERCK-1202USA00470

PATIENT
  Age: 71 Year
  Sex: Female
  Weight: 45 kg

DRUGS (5)
  1. DECADRON [Suspect]
     Indication: CHEMOTHERAPY
     Route: 048
     Dates: start: 20110922
  2. BARACLUDE [Suspect]
     Indication: VIRAL HEPATITIS CARRIER
     Route: 048
     Dates: start: 20110106, end: 20120202
  3. GEMCITABINE [Concomitant]
     Route: 042
  4. JANUVIA [Suspect]
     Indication: DIABETES MELLITUS
     Route: 048
     Dates: start: 20111222, end: 20120202
  5. PROMACTA [Suspect]
     Indication: CHEMOTHERAPY
     Route: 048
     Dates: start: 20111222, end: 20120202

REACTIONS (1)
  - HEPATITIS FULMINANT [None]
